FAERS Safety Report 18980353 (Version 2)
Quarter: 2022Q2

REPORT INFORMATION
  Report Type: Report from Study
  Country: TH (occurrence: TH)
  Receive Date: 20210308
  Receipt Date: 20220516
  Transmission Date: 20220721
  Serious: Yes (Other)
  Sender: FDA-Public Use
  Company Number: TH-NOVARTISPH-NVSC2020TH255392

PATIENT
  Sex: Female

DRUGS (4)
  1. KISQALI [Suspect]
     Active Substance: RIBOCICLIB
     Indication: Breast cancer metastatic
     Dosage: UNK (3 WEEKS THEN STOP 1 WEEK)
     Route: 048
     Dates: start: 20200826
  2. KISQALI [Suspect]
     Active Substance: RIBOCICLIB
     Dosage: 2 DF (2 TAB/TIMES)
     Route: 048
  3. KISQALI [Suspect]
     Active Substance: RIBOCICLIB
     Dosage: 1 DF (1 TAB/TIMES)
     Route: 048
  4. KISQALI [Suspect]
     Active Substance: RIBOCICLIB
     Dosage: UNK
     Route: 048
     Dates: end: 20220316

REACTIONS (5)
  - Immunosuppression [Unknown]
  - Thrombocytopenia [Unknown]
  - White blood cell count decreased [Unknown]
  - Drug resistance [Unknown]
  - Therapy non-responder [Unknown]
